FAERS Safety Report 6984599-7 (Version None)
Quarter: 2010Q3

REPORT INFORMATION
  Report Type: 
  Country: None (occurrence: None)
  Receive Date: 20100915
  Receipt Date: 20100906
  Transmission Date: 20110219
  Serious: Yes (Other)
  Sender: FDA-Public Use
  Company Number: JP-PFIZER INC-2010099339

PATIENT
  Age: 80 Year
  Sex: Male

DRUGS (2)
  1. DOXAZOSIN MESYLATE [Suspect]
     Indication: HYPERTENSION
     Dosage: 0.5MG, DAILY
     Route: 048
     Dates: start: 20100531, end: 20100802
  2. DOXAZOSIN MESYLATE [Suspect]
     Dosage: 1.0 MG, 1X/DAY
     Route: 048
     Dates: start: 20100802

REACTIONS (2)
  - BLOOD COUNT ABNORMAL [None]
  - HAEMOGLOBIN DECREASED [None]
